FAERS Safety Report 10401358 (Version 1)
Quarter: 2014Q3

REPORT INFORMATION
  Report Type: Spontaneous
  Country: KR (occurrence: KR)
  Receive Date: 20140822
  Receipt Date: 20140822
  Transmission Date: 20150326
  Serious: Yes (Death)
  Sender: FDA-Public Use
  Company Number: KR-JNJFOC-20140818008

PATIENT

DRUGS (4)
  1. ACETOAMINOPHEN [Suspect]
     Active Substance: ACETAMINOPHEN
     Indication: ABDOMINAL PAIN
     Route: 064
  2. CODEINE [Suspect]
     Active Substance: CODEINE
     Indication: ABDOMINAL PAIN
     Route: 064
  3. PETHIDINE [Suspect]
     Active Substance: MEPERIDINE
     Indication: ABDOMINAL PAIN
     Route: 064
  4. ACETOAMINOPHEN [Suspect]
     Active Substance: ACETAMINOPHEN
     Route: 064

REACTIONS (7)
  - Premature rupture of membranes [None]
  - Foetal heart rate deceleration abnormality [None]
  - Caesarean section [None]
  - Death [Fatal]
  - Maternal drugs affecting foetus [None]
  - Premature baby [Unknown]
  - Foetal exposure during pregnancy [Unknown]
